FAERS Safety Report 8715500 (Version 2)
Quarter: 2012Q4

REPORT INFORMATION
  Report Type: 
  Country: DE (occurrence: DE)
  Receive Date: 20120809
  Receipt Date: 20121011
  Transmission Date: 20130627
  Serious: Yes (Life-Threatening)
  Sender: FDA-Public Use
  Company Number: DE-ROCHE-1098385

PATIENT
  Age: 61 Year
  Sex: Male
  Weight: 70 kg

DRUGS (2)
  1. ACTILYSE [Suspect]
     Indication: CEREBRAL INFARCTION
     Route: 042
     Dates: start: 20120131, end: 20120131
  2. ACTILYSE [Suspect]
     Route: 042
     Dates: start: 20120131, end: 20120131

REACTIONS (4)
  - Anaphylactic reaction [Unknown]
  - Endotracheal intubation [Unknown]
  - Swelling [Unknown]
  - Generalised erythema [Unknown]
